FAERS Safety Report 4787858-1 (Version None)
Quarter: 2005Q4

REPORT INFORMATION
  Report Type: 
  Country: None (occurrence: None)
  Receive Date: 20051004
  Receipt Date: 20050920
  Transmission Date: 20060501
  Serious: Yes (Death)
  Sender: FDA-Public Use
  Company Number: GB-MERCK-0509GBR00160

PATIENT
  Age: 15 Year
  Sex: Male

DRUGS (3)
  1. CANCIDAS [Suspect]
     Indication: LUNG DISORDER
     Route: 042
  2. VORICONAZOLE [Suspect]
     Indication: LUNG DISORDER
     Route: 065
  3. [THERAPY UNSPECIFIED] [Concomitant]
     Route: 065

REACTIONS (2)
  - LUNG DISORDER [None]
  - PNEUMOTHORAX [None]
